FAERS Safety Report 16969939 (Version 2)
Quarter: 2019Q4

REPORT INFORMATION
  Report Type: Spontaneous
  Country: JP (occurrence: JP)
  Receive Date: 20191029
  Receipt Date: 20191126
  Transmission Date: 20200122
  Serious: Yes (Other)
  Sender: FDA-Public Use
  Company Number: JP-ASTELLAS-2017JP017835

PATIENT
  Age: 73 Year
  Sex: Male

DRUGS (8)
  1. GONAX [Suspect]
     Active Substance: DEGARELIX
     Indication: PROSTATE CANCER
     Route: 058
     Dates: start: 20170204
  2. XTANDI [Suspect]
     Active Substance: ENZALUTAMIDE
     Route: 048
     Dates: start: 20171218
  3. URSO [Concomitant]
     Active Substance: URSODIOL
     Indication: HEPATIC FUNCTION ABNORMAL
     Dosage: UNK UNK, UNKNOWN FREQ.
     Route: 048
  4. CASODEX [Concomitant]
     Active Substance: BICALUTAMIDE
     Indication: PRODUCT USED FOR UNKNOWN INDICATION
     Dosage: UNK UNK, UNKNOWN FREQ.
     Route: 048
  5. DEPAS [Concomitant]
     Indication: INSOMNIA
     Dosage: UNK UNK, UNKNOWN FREQ.
     Route: 048
  6. XTANDI [Suspect]
     Active Substance: ENZALUTAMIDE
     Indication: HORMONE-REFRACTORY PROSTATE CANCER
     Route: 048
     Dates: start: 20171204, end: 20171217
  7. GONAX [Suspect]
     Active Substance: DEGARELIX
     Route: 058
     Dates: start: 20170107, end: 20170107
  8. XTANDI [Suspect]
     Active Substance: ENZALUTAMIDE
     Indication: HORMONE-REFRACTORY PROSTATE CANCER
     Route: 048

REACTIONS (16)
  - Prescribed underdose [Unknown]
  - Fatigue [Not Recovered/Not Resolved]
  - Malaise [Not Recovered/Not Resolved]
  - Injection site induration [Recovering/Resolving]
  - Hypokalaemia [Recovering/Resolving]
  - Insomnia [Recovering/Resolving]
  - Blood glucose increased [Unknown]
  - Breast pain [Unknown]
  - Pyrexia [Recovering/Resolving]
  - Blood pressure increased [Recovering/Resolving]
  - Myalgia [Not Recovered/Not Resolved]
  - Hepatic function abnormal [Recovered/Resolved]
  - Trigger finger [Recovered/Resolved]
  - Hepatic function abnormal [Recovering/Resolving]
  - Muscle spasms [Recovering/Resolving]
  - Abdominal discomfort [Recovering/Resolving]

NARRATIVE: CASE EVENT DATE: 201712
